FAERS Safety Report 4323337-3 (Version None)
Quarter: 2004Q1

REPORT INFORMATION
  Report Type: 
  Country: None (occurrence: None)
  Receive Date: 20040323
  Receipt Date: 20040323
  Transmission Date: 20041129
  Serious: Yes (Other)
  Sender: FDA-Public Use
  Company Number: None

PATIENT
  Age: 82 Year
  Sex: Male
  Weight: 76.9 kg

DRUGS (6)
  1. LINEZOLID [Suspect]
     Indication: OSTEOMYELITIS
     Dosage: 600 MG Q 12H ORAL
     Route: 048
     Dates: start: 20030825, end: 20030916
  2. DILTIAZEM [Concomitant]
  3. FOSINOPRIL NA [Concomitant]
  4. BECAPLERMIN 0.01% [Concomitant]
  5. ALPRAZOLAM [Concomitant]
  6. INSULIN REG HUMAN 100U/ML INJ NOVOLIN R [Concomitant]

REACTIONS (1)
  - THROMBOCYTOPENIA [None]
